FAERS Safety Report 12753900 (Version 1)
Quarter: 2016Q3

REPORT INFORMATION
  Report Type: Spontaneous
  Country: IN (occurrence: IN)
  Receive Date: 20160916
  Receipt Date: 20160916
  Transmission Date: 20161109
  Serious: Yes (Hospitalization)
  Sender: FDA-Public Use
  Company Number: IN-JNJFOC-20160908193

PATIENT
  Age: 63 Year
  Sex: Female

DRUGS (1)
  1. IBRUTINIB [Suspect]
     Active Substance: IBRUTINIB
     Indication: CHRONIC LYMPHOCYTIC LEUKAEMIA
     Route: 048
     Dates: start: 20160414

REACTIONS (4)
  - Vomiting [Unknown]
  - Product physical issue [Unknown]
  - Gingival bleeding [Unknown]
  - Diarrhoea [Unknown]

NARRATIVE: CASE EVENT DATE: 201608
